FAERS Safety Report 14672797 (Version 2)
Quarter: 2018Q2

REPORT INFORMATION
  Report Type: Other
  Country: CA (occurrence: CA)
  Receive Date: 20180323
  Receipt Date: 20180422
  Transmission Date: 20180711
  Serious: Yes (Other)
  Sender: FDA-Public Use
  Company Number: CA-APOTEX-2018AP008181

PATIENT
  Age: 65 Year
  Sex: Male
  Weight: 96 kg

DRUGS (2)
  1. SALBUTAMOL [Suspect]
     Active Substance: ALBUTEROL
     Indication: ASTHMA
     Dosage: UNK INHALATION
     Route: 050
  2. AVAMYS [Suspect]
     Active Substance: FLUTICASONE FUROATE
     Indication: RHINITIS ALLERGIC
     Dosage: UNK
     Route: 045

REACTIONS (4)
  - Thrombosis [Not Recovered/Not Resolved]
  - Anxiety [Not Recovered/Not Resolved]
  - Road traffic accident [Not Recovered/Not Resolved]
  - Hypertension [Not Recovered/Not Resolved]
